FAERS Safety Report 22734315 (Version 3)
Quarter: 2023Q4

REPORT INFORMATION
  Report Type: Spontaneous
  Country: US (occurrence: None)
  Receive Date: 20230721
  Receipt Date: 20231218
  Transmission Date: 20240110
  Serious: Yes (Hospitalization, Other)
  Sender: FDA-Public Use
  Company Number: US-ROCHE-3389622

PATIENT
  Age: 25 Year
  Sex: Male

DRUGS (1)
  1. HEMLIBRA [Suspect]
     Active Substance: EMICIZUMAB-KXWH
     Indication: Factor VIII deficiency
     Dosage: STRENGTH- 105MG/0.7 ML
     Route: 058
     Dates: start: 202306

REACTIONS (4)
  - Haemorrhage [Not Recovered/Not Resolved]
  - Thrombosis [Unknown]
  - Fall [Unknown]
  - Swelling [Unknown]

NARRATIVE: CASE EVENT DATE: 20230619
